FAERS Safety Report 8098281-9 (Version None)
Quarter: 2012Q1

REPORT INFORMATION
  Report Type: 
  Country: None (occurrence: None)
  Receive Date: 20120128
  Receipt Date: 20110822
  Transmission Date: 20120608
  Serious: No
  Sender: FDA-Public Use
  Company Number: US-ABBOTT-11P-163-0844695-00

PATIENT
  Sex: Male
  Weight: 70.37 kg

DRUGS (5)
  1. PHENERGAN [Concomitant]
     Indication: NAUSEA
  2. PERCOCET [Concomitant]
     Indication: CROHN'S DISEASE
  3. NEURONTIN [Concomitant]
     Indication: BIPOLAR DISORDER
  4. PREDNISONE TAB [Concomitant]
     Indication: CROHN'S DISEASE
     Dosage: TAPER, DAILY
  5. HUMIRA [Suspect]
     Indication: CROHN'S DISEASE
     Dosage: (160 MG, LOADING DOSE)
     Route: 058
     Dates: start: 20110716

REACTIONS (2)
  - ABDOMINAL PAIN [None]
  - DRUG INEFFECTIVE [None]
